FAERS Safety Report 5105445-2 (Version None)
Quarter: 2006Q3

REPORT INFORMATION
  Report Type: 
  Country: None (occurrence: None)
  Receive Date: 20060915
  Receipt Date: 20060605
  Transmission Date: 20061208
  Serious: No
  Sender: FDA-Public Use
  Company Number: US-GLAXOSMITHKLINE-A0607901A

PATIENT
  Age: 52 Year
  Sex: Female

DRUGS (1)
  1. AVANDARYL [Suspect]
     Dosage: 1TAB PER DAY
     Route: 048
     Dates: start: 20060501

REACTIONS (2)
  - BLOOD GLUCOSE DECREASED [None]
  - DIZZINESS [None]
